FAERS Safety Report 9038847 (Version 2)
Quarter: 2013Q1

REPORT INFORMATION
  Report Type: Spontaneous
  Country: US (occurrence: US)
  Receive Date: 20130129
  Receipt Date: 20130321
  Transmission Date: 20140127
  Serious: Yes (Other)
  Sender: FDA-Public Use
  Company Number: US-TEVA-382787USA

PATIENT
  Sex: Female

DRUGS (14)
  1. TOPIRAMATE [Suspect]
     Indication: PAIN MANAGEMENT
     Dosage: 100 MILLIGRAM DAILY;
     Route: 048
  2. TOPIRAMATE [Suspect]
     Indication: WEIGHT DECREASED
  3. TOPIRAMATE [Suspect]
     Indication: CONVULSION
  4. FLONASE [Concomitant]
  5. EXALGO [Concomitant]
  6. LAMOTRIGINE [Concomitant]
  7. SYNTHROID [Concomitant]
  8. METFORMIN [Concomitant]
  9. SINGULAIR [Concomitant]
  10. PRILOSEC [Concomitant]
  11. ZOLOFT [Concomitant]
  12. XANAFLEX [Concomitant]
  13. TRAZODONE [Concomitant]
  14. CEPHALEXA [Concomitant]
     Indication: INFLUENZA

REACTIONS (5)
  - Glaucoma [Recovering/Resolving]
  - Retinal degeneration [Recovering/Resolving]
  - Headache [Unknown]
  - Photopsia [Unknown]
  - Visual impairment [Unknown]
